FAERS Safety Report 4392592-6 (Version None)
Quarter: 2004Q3

REPORT INFORMATION
  Report Type: 
  Country: None (occurrence: None)
  Receive Date: 20040702
  Receipt Date: 20040618
  Transmission Date: 20050211
  Serious: Yes (Hospitalization)
  Sender: FDA-Public Use
  Company Number: 2004-FF-00381FF

PATIENT
  Age: 46 Year
  Sex: Female

DRUGS (3)
  1. MOBIC [Suspect]
     Dosage: MG, PO
     Route: 048
  2. PREDNISONE TAB [Concomitant]
  3. ENBREL (ETANERCEPT) [Concomitant]

REACTIONS (3)
  - ABSCESS [None]
  - OSTEITIS [None]
  - STREPTOCOCCAL INFECTION [None]
